FAERS Safety Report 8598580-8 (Version None)
Quarter: 2012Q3

REPORT INFORMATION
  Report Type: 
  Country: None (occurrence: None)
  Receive Date: 20120816
  Receipt Date: 20120809
  Transmission Date: 20120928
  Serious: Yes (Other)
  Sender: FDA-Public Use
  Company Number: FR-PFIZER INC-2012195201

PATIENT
  Sex: Female

DRUGS (1)
  1. LYRICA [Suspect]
     Indication: NEURALGIA
     Dosage: 300 MG, 1X/DAY

REACTIONS (10)
  - MUSCLE ATROPHY [None]
  - BLINDNESS [None]
  - SLEEP DISORDER [None]
  - COUGH [None]
  - DECREASED APPETITE [None]
  - NAUSEA [None]
  - EYE PAIN [None]
  - SWELLING [None]
  - GASTROOESOPHAGEAL REFLUX DISEASE [None]
  - HIATUS HERNIA [None]
